FAERS Safety Report 5530530-0 (Version None)
Quarter: 2007Q4

REPORT INFORMATION
  Report Type: 
  Country: None (occurrence: None)
  Receive Date: 20071130
  Receipt Date: 20071128
  Transmission Date: 20080405
  Serious: Yes (Death, Hospitalization)
  Sender: FDA-Public Use
  Company Number: PT-BRISTOL-MYERS SQUIBB COMPANY-13997226

PATIENT
  Sex: Male

DRUGS (3)
  1. ATAZANAVIR [Suspect]
  2. RITONAVIR [Suspect]
  3. COMBIVIR [Suspect]

REACTIONS (2)
  - CD4 LYMPHOCYTES DECREASED [None]
  - PNEUMONIA [None]
